FAERS Safety Report 6187262-8 (Version None)
Quarter: 2009Q2

REPORT INFORMATION
  Report Type: 
  Country: None (occurrence: None)
  Receive Date: 20090512
  Receipt Date: 20090507
  Transmission Date: 20091009
  Serious: Yes (Death)
  Sender: FDA-Public Use
  Company Number: PHHO2009KR05755

PATIENT
  Sex: Female
  Weight: 48 kg

DRUGS (1)
  1. EXELON [Suspect]
     Indication: DEMENTIA
     Dosage: 4.5MG TWICE A DAY
     Route: 048
     Dates: start: 20081127, end: 20090322

REACTIONS (1)
  - MYOCARDIAL INFARCTION [None]
